FAERS Safety Report 9196878 (Version 2)
Quarter: 2013Q3

REPORT INFORMATION
  Report Type: Spontaneous
  Country: DE (occurrence: DE)
  Receive Date: 20130328
  Receipt Date: 20130819
  Transmission Date: 20140515
  Serious: Yes (Other)
  Sender: FDA-Public Use
  Company Number: PHHY2013DE029031

PATIENT
  Age: 75 Year
  Sex: Female

DRUGS (1)
  1. FEMARA [Suspect]
     Indication: BREAST CANCER
     Dosage: 2.5 MG, UNK
     Route: 048
     Dates: start: 2001

REACTIONS (13)
  - Basal cell carcinoma [Unknown]
  - Second primary malignancy [Unknown]
  - Vocal cord paralysis [Unknown]
  - Speech disorder [Unknown]
  - Oropharyngeal discomfort [Unknown]
  - Cough [Unknown]
  - Dysphagia [Unknown]
  - Upper respiratory tract congestion [Unknown]
  - Myalgia [Unknown]
  - Arthralgia [Unknown]
  - Movement disorder [Unknown]
  - Alopecia [Unknown]
  - Hot flush [Unknown]
